FAERS Safety Report 8352201-8 (Version None)
Quarter: 2012Q2

REPORT INFORMATION
  Report Type: 
  Country: None (occurrence: None)
  Receive Date: 20120511
  Receipt Date: 20120503
  Transmission Date: 20120825
  Serious: Yes (Hospitalization, Other)
  Sender: FDA-Public Use
  Company Number: US-CELGENEUS-163-21880-12031200

PATIENT
  Sex: Male

DRUGS (30)
  1. REVLIMID [Suspect]
     Dosage: 5 MILLIGRAM
     Route: 048
     Dates: start: 20120301
  2. PROCHLORPERAZINE MALEATE [Concomitant]
     Dosage: 10 MILLIGRAM
     Route: 048
  3. REVLIMID [Suspect]
     Indication: MULTIPLE MYELOMA
     Dosage: 10 MILLIGRAM
     Route: 048
     Dates: start: 20110901
  4. DIAZEPAM [Concomitant]
     Dosage: 2 MILLIGRAM
     Route: 048
  5. LOVASTATIN [Concomitant]
     Dosage: 40 MILLIGRAM
     Route: 065
  6. COLACE [Concomitant]
     Dosage: 100 MILLIGRAM
     Route: 048
  7. DEXAMETHASONE [Concomitant]
     Dosage: 4 MILLIGRAM
     Route: 048
  8. MIRALAX [Concomitant]
     Dosage: 17 GRAM
     Route: 048
  9. NOVOLOG MIX 70/30 [Concomitant]
     Dosage: 100UNIT/L
     Route: 058
  10. FERROUS FUMARATE [Concomitant]
     Dosage: 324 MILLIGRAM
     Route: 065
  11. ASPIRIN [Concomitant]
     Dosage: 81 MILLIGRAM
     Route: 065
  12. RANITIDINE [Concomitant]
     Dosage: 150 MILLIGRAM
     Route: 065
  13. OXYCONTIN [Concomitant]
     Dosage: 15 MILLIGRAM
     Route: 048
  14. WARFARIN SODIUM [Concomitant]
     Dosage: 2MG +5MG
     Route: 065
  15. FLORINEF [Concomitant]
     Dosage: .1 MILLIGRAM
     Route: 065
  16. HUMULIN R [Concomitant]
     Dosage: 70/30
     Route: 065
  17. OMEPRAZOLE [Concomitant]
     Dosage: 20 MILLIGRAM
     Route: 048
  18. ARANESP [Concomitant]
     Dosage: 200 MICROGRAM
     Route: 065
  19. NYSTATIN [Concomitant]
     Route: 061
  20. OXYCODONE HCL [Concomitant]
     Dosage: 15 MILLIGRAM
     Route: 065
  21. CEPHALEXIN [Concomitant]
     Route: 065
  22. CELEXA [Concomitant]
     Route: 065
  23. HUMALOG [Concomitant]
     Dosage: 2-15 UNITS
     Route: 058
  24. ROXICODONE [Concomitant]
     Dosage: 5 MILLIGRAM
     Route: 065
  25. FERROUS GLUCONATE [Concomitant]
     Dosage: 324 MILLIGRAM
     Route: 048
  26. METOPROLOL TARTRATE [Concomitant]
     Dosage: 25 MILLIGRAM
     Route: 048
  27. NITROGLYCERIN [Concomitant]
     Dosage: .4 MILLIGRAM
     Route: 060
  28. ZOMETA [Concomitant]
     Route: 065
  29. POTASSIUM CHLORIDE [Concomitant]
     Dosage: 20 MILLIEQUIVALENTS
     Route: 048
  30. CIPROFLOXACIN [Concomitant]
     Dosage: 500 MILLIGRAM
     Route: 048

REACTIONS (9)
  - LEUKOPENIA [None]
  - THROMBOCYTOPENIA [None]
  - URETHRAL HAEMORRHAGE [None]
  - PANCYTOPENIA [None]
  - FATIGUE [None]
  - PENILE HAEMORRHAGE [None]
  - PENILE INFECTION [None]
  - ORTHOSTATIC HYPOTENSION [None]
  - STAPHYLOCOCCAL INFECTION [None]
